FAERS Safety Report 5529403-9 (Version None)
Quarter: 2007Q4

REPORT INFORMATION
  Report Type: 
  Country: None (occurrence: None)
  Receive Date: 20071129
  Receipt Date: 20071122
  Transmission Date: 20080405
  Serious: Yes (Hospitalization)
  Sender: FDA-Public Use
  Company Number: JP-BAYER-200710867BYL

PATIENT
  Age: 83 Year
  Sex: Male

DRUGS (5)
  1. ASPIRIN [Suspect]
     Indication: MYOCARDIAL INFARCTION
     Route: 048
  2. TAKEPRON [Suspect]
     Route: 048
  3. PANALDINE [Suspect]
     Route: 048
  4. ARTIST [Suspect]
     Route: 048
  5. TANATRIL [Suspect]
     Route: 048

REACTIONS (2)
  - DECREASED APPETITE [None]
  - EOSINOPHIL COUNT INCREASED [None]
